FAERS Safety Report 7479663-2 (Version None)
Quarter: 2011Q2

REPORT INFORMATION
  Report Type: 
  Country: None (occurrence: None)
  Receive Date: 20110513
  Receipt Date: 20110506
  Transmission Date: 20111010
  Serious: Yes (Hospitalization)
  Sender: FDA-Public Use
  Company Number: PL-ABBOTT-11P-129-0722614-00

PATIENT
  Age: 81 Year
  Sex: Male

DRUGS (6)
  1. CYPROTERONE [Concomitant]
     Indication: PROSTATE CANCER
  2. FLUTAMIDE [Concomitant]
     Indication: PROSTATE CANCER
  3. FINASTERIDE [Concomitant]
     Indication: PROSTATE CANCER
  4. TAMSULOSIN HCL [Concomitant]
     Indication: PROSTATE CANCER
  5. LUCRIN DEPOT INJECTION [Suspect]
     Indication: PROSTATE CANCER
     Route: 030
  6. ZOLADEX [Suspect]
     Indication: PROSTATE CANCER

REACTIONS (1)
  - PEMPHIGOID [None]
